FAERS Safety Report 12981667 (Version 1)
Quarter: 2016Q4

REPORT INFORMATION
  Report Type: Other
  Country: JP (occurrence: JP)
  Receive Date: 20161129
  Receipt Date: 20161129
  Transmission Date: 20170207
  Serious: Yes (Life-Threatening, Hospitalization)
  Sender: FDA-Public Use
  Company Number: JP-NOVEL LABORATORIES, INC-2016-05267

PATIENT
  Age: 67 Year
  Sex: Male

DRUGS (2)
  1. GARENOXACIN [Concomitant]
     Active Substance: GARENOXACIN
     Indication: PNEUMONIA
     Route: 065
  2. VORICONAZOLE. [Suspect]
     Active Substance: VORICONAZOLE
     Indication: BRONCHOPULMONARY ASPERGILLOSIS
     Route: 065

REACTIONS (1)
  - Acute lung injury [Recovered/Resolved]
